FAERS Safety Report 20383275 (Version 4)
Quarter: 2022Q1

REPORT INFORMATION
  Report Type: Spontaneous
  Country: GB (occurrence: GB)
  Receive Date: 20220127
  Receipt Date: 20220310
  Transmission Date: 20220424
  Serious: Yes (Congenital Anomaly, Other)
  Sender: FDA-Public Use
  Company Number: None

PATIENT

DRUGS (8)
  1. ONDANSETRON [Suspect]
     Active Substance: ONDANSETRON
     Indication: Foetal exposure during pregnancy
     Dosage: MATERNAL DOSE: 4 MG, BID
     Route: 064
     Dates: start: 20080112, end: 20080114
  2. ONDANSETRON [Suspect]
     Active Substance: ONDANSETRON
     Dosage: MATERNAL DOSE: 4 MG, TID
     Route: 064
     Dates: start: 20080114
  3. CYCLIZINE [Concomitant]
     Active Substance: CYCLIZINE
     Indication: Foetal exposure during pregnancy
     Dosage: MATERNAL DOSE: 50 MG, TID (PARENT ROUTE IV/IM/ORAL ROUTE)
     Route: 064
     Dates: start: 20080109, end: 20080114
  4. PROMETHAZINE [Concomitant]
     Active Substance: PROMETHAZINE HYDROCHLORIDE
     Indication: Foetal exposure during pregnancy
     Dosage: MATERNAL DOSE: 25 MG, TID
     Route: 064
     Dates: start: 20080109, end: 20080110
  5. METOCLOPRAMIDE [Concomitant]
     Active Substance: METOCLOPRAMIDE
     Indication: Foetal exposure during pregnancy
     Dosage: MATERNAL DOSE: 10 MG, TID (PARENT ROUTE IV/IM/ORAL)
     Route: 064
     Dates: start: 20080109, end: 20080115
  6. METOCLOPRAMIDE [Concomitant]
     Active Substance: METOCLOPRAMIDE
     Dosage: MATERNAL DOSE: 10 MG, TID
     Route: 064
     Dates: start: 20080116
  7. FOLIC ACID [Concomitant]
     Active Substance: FOLIC ACID
     Indication: Foetal exposure during pregnancy
     Dosage: MATERNAL DOSE: 5 MG, QD (MORNING)
     Route: 064
     Dates: start: 200801
  8. THIAMINE [Concomitant]
     Active Substance: THIAMINE
     Indication: Foetal exposure during pregnancy
     Dosage: MATERNAL DOSE: 25 MG, QD
     Route: 064
     Dates: start: 20080114

REACTIONS (8)
  - Heart disease congenital [Unknown]
  - Gastroschisis [Unknown]
  - Foetal malformation [Unknown]
  - Spinal deformity [Unknown]
  - Foetal growth restriction [Unknown]
  - Maternal drugs affecting foetus [Unknown]
  - Foetal exposure during pregnancy [Unknown]
  - Foetal exposure during pregnancy [Unknown]

NARRATIVE: CASE EVENT DATE: 20071101
